FAERS Safety Report 14440649 (Version 2)
Quarter: 2018Q1

REPORT INFORMATION
  Report Type: Spontaneous
  Country: US (occurrence: US)
  Receive Date: 20180125
  Receipt Date: 20180202
  Transmission Date: 20180509
  Serious: Yes (Hospitalization)
  Sender: FDA-Public Use
  Company Number: US-SAOL THERAPEUTICS-2018SAO00075

PATIENT
  Age: 39 Year
  Sex: Female

DRUGS (3)
  1. BACLOFEN. [Suspect]
     Active Substance: BACLOFEN
     Indication: MUSCLE SPASTICITY
     Dosage: 500 ?G, \DAY
     Route: 037
  2. BACLOFEN. [Suspect]
     Active Substance: BACLOFEN
     Indication: CEREBROVASCULAR ACCIDENT
  3. LIORESAL [Suspect]
     Active Substance: BACLOFEN
     Dosage: 525 ?G, \DAY
     Route: 037
     Dates: start: 20071203

REACTIONS (2)
  - Drug withdrawal syndrome [Recovered/Resolved]
  - Autonomic dysreflexia [Unknown]

NARRATIVE: CASE EVENT DATE: 20180116
